FAERS Safety Report 5366116-0 (Version None)
Quarter: 2007Q2

REPORT INFORMATION
  Report Type: 
  Country: None (occurrence: None)
  Receive Date: 20070516
  Receipt Date: 20070126
  Transmission Date: 20071010
  Serious: Yes (Other)
  Sender: FDA-Public Use
  Company Number: 260359

PATIENT

DRUGS (2)
  1. NOVOSEVEN [Suspect]
     Indication: INJURY
  2. NOVOSEVEN [Suspect]
     Indication: TRAUMATIC HAEMORRHAGE

REACTIONS (1)
  - PULMONARY EMBOLISM [None]
